FAERS Safety Report 6005067-5 (Version None)
Quarter: 2008Q4

REPORT INFORMATION
  Report Type: 
  Country: None (occurrence: None)
  Receive Date: 20081216
  Receipt Date: 20081209
  Transmission Date: 20090506
  Serious: Yes (Other)
  Sender: FDA-Public Use
  Company Number: PHBS2008CN06524

PATIENT
  Sex: Male
  Weight: 2.2 kg

DRUGS (3)
  1. CYCLOSPORINE [Suspect]
     Route: 064
  2. AZATHIOPRINE [Suspect]
     Route: 064
  3. PREDNISONE TAB [Suspect]

REACTIONS (18)
  - ARRHYTHMIA NEONATAL [None]
  - BLOOD CALCIUM DECREASED [None]
  - BLOOD CREATINE PHOSPHOKINASE INCREASED [None]
  - BLOOD CREATINE PHOSPHOKINASE MB INCREASED [None]
  - BLOOD GLUCOSE DECREASED [None]
  - BLOOD LACTATE DEHYDROGENASE INCREASED [None]
  - BLOOD SODIUM DECREASED [None]
  - BRADYCARDIA NEONATAL [None]
  - CARDIAC DISORDER [None]
  - CYANOSIS NEONATAL [None]
  - DRUG EXPOSURE DURING PREGNANCY [None]
  - HEART SOUNDS ABNORMAL [None]
  - HYPOGLYCAEMIA NEONATAL [None]
  - INFANTILE APNOEIC ATTACK [None]
  - MYOTONIA [None]
  - POOR SUCKING REFLEX [None]
  - PREMATURE BABY [None]
  - REFLEXES ABNORMAL [None]
